FAERS Safety Report 20053019 (Version 1)
Quarter: 2021Q4

REPORT INFORMATION
  Report Type: Spontaneous
  Country: DE (occurrence: DE)
  Receive Date: 20211110
  Receipt Date: 20211110
  Transmission Date: 20220303
  Serious: Yes (Other)
  Sender: FDA-Public Use
  Company Number: DE-ASTELLAS-2021US042414

PATIENT
  Age: 69 Year
  Sex: Male

DRUGS (1)
  1. XTANDI [Suspect]
     Active Substance: ENZALUTAMIDE
     Indication: Product used for unknown indication
     Route: 065
     Dates: start: 20211018

REACTIONS (5)
  - General physical health deterioration [Unknown]
  - Illness [Unknown]
  - Feeding disorder [Unknown]
  - Oligodipsia [Unknown]
  - Nausea [Unknown]

NARRATIVE: CASE EVENT DATE: 20211019
